FAERS Safety Report 5407598-5 (Version None)
Quarter: 2007Q3

REPORT INFORMATION
  Report Type: 
  Country: None (occurrence: None)
  Receive Date: 20070803
  Receipt Date: 20070718
  Transmission Date: 20080115
  Serious: Yes (Other)
  Sender: FDA-Public Use
  Company Number: 028-21880-07071569

PATIENT
  Age: 66 Year
  Sex: Male

DRUGS (6)
  1. REVLIMID [Suspect]
     Indication: MYELODYSPLASTIC SYNDROME
     Dosage: 10 MG, 1 IN 1 D, ORAL; 10 MG, 2 IN 1 D, ORAL
     Route: 048
     Dates: start: 20070201, end: 20070201
  2. REVLIMID [Suspect]
     Indication: MYELODYSPLASTIC SYNDROME
     Dosage: 10 MG, 1 IN 1 D, ORAL; 10 MG, 2 IN 1 D, ORAL
     Route: 048
     Dates: start: 20070301, end: 20070601
  3. REVLIMID [Suspect]
  4. REVLIMID [Suspect]
  5. PRILOSEC [Concomitant]
  6. COUMADIN [Concomitant]

REACTIONS (1)
  - BIFASCICULAR BLOCK [None]
